FAERS Safety Report 16297136 (Version 1)
Quarter: 2019Q2

REPORT INFORMATION
  Report Type: Spontaneous
  Country: US (occurrence: US)
  Receive Date: 20190405
  Receipt Date: 20190405
  Transmission Date: 20190711
  Serious: Yes (Life-Threatening)
  Sender: FDA-Public Use
  Company Number: None

PATIENT
  Age: 31 Year
  Sex: Female
  Weight: 102.06 kg

DRUGS (1)
  1. BUNAVAIL [Suspect]
     Active Substance: BUPRENORPHINE HYDROCHLORIDE\NALOXONE HYDROCHLORIDE
     Indication: ANAPHYLACTIC REACTION
     Dosage: 4.2/0.7MG; ONE A DAY; BUCALL?
     Route: 002
     Dates: start: 20180921, end: 20180924

REACTIONS (3)
  - Migraine [None]
  - Oral mucosal blistering [None]
  - Throat tightness [None]

NARRATIVE: CASE EVENT DATE: 20180924
